FAERS Safety Report 24591061 (Version 2)
Quarter: 2024Q4

REPORT INFORMATION
  Report Type: Report from Study
  Country: US (occurrence: US)
  Receive Date: 20241107
  Receipt Date: 20241127
  Transmission Date: 20250115
  Serious: Yes (Hospitalization, Other)
  Sender: ABBVIE
  Company Number: US-ABBVIE-5991609

PATIENT
  Age: 58 Year
  Sex: Female
  Weight: 81.6 kg

DRUGS (2)
  1. RINVOQ [Suspect]
     Active Substance: UPADACITINIB
     Indication: Colitis ulcerative
     Dosage: FORM STRENGTH: 15 MILLIGRAM
     Route: 048
     Dates: start: 20231206
  2. RINVOQ [Suspect]
     Active Substance: UPADACITINIB
     Indication: Colitis ulcerative
     Dosage: FORM STRENGTH: 15 MILLIGRAM?STOP DATE: DEC 2023
     Route: 048
     Dates: start: 20231201

REACTIONS (5)
  - Myelopathy [Recovering/Resolving]
  - Polyarthritis [Not Recovered/Not Resolved]
  - Herpes zoster [Recovered/Resolved]
  - Arthralgia [Not Recovered/Not Resolved]
  - Escherichia test positive [Not Recovered/Not Resolved]

NARRATIVE: CASE EVENT DATE: 20240101
